FAERS Safety Report 22670015 (Version 4)
Quarter: 2023Q4

REPORT INFORMATION
  Report Type: Spontaneous
  Country: CA (occurrence: CA)
  Receive Date: 20230704
  Receipt Date: 20231128
  Transmission Date: 20240110
  Serious: Yes (Hospitalization, Other)
  Sender: FDA-Public Use
  Company Number: CA-PFIZER INC-2021275408

PATIENT
  Age: 67 Year
  Sex: Female
  Weight: 147 kg

DRUGS (17)
  1. RUXIENCE [Suspect]
     Active Substance: RITUXIMAB-PVVR
     Indication: Granulomatosis with polyangiitis
     Dosage: UNK
     Dates: start: 201910
  2. RUXIENCE [Suspect]
     Active Substance: RITUXIMAB-PVVR
     Indication: Microscopic polyangiitis
     Dosage: 500 MG, EVERY 6 MONTHS X 2 DOSES
     Route: 042
     Dates: start: 20210324, end: 20210324
  3. RUXIENCE [Suspect]
     Active Substance: RITUXIMAB-PVVR
     Dosage: 500 MG, EVERY 6 MONTHS
     Route: 042
     Dates: start: 20210924, end: 20210924
  4. RUXIENCE [Suspect]
     Active Substance: RITUXIMAB-PVVR
     Dosage: 500 MG, EVERY 6 MONTHS X 2 DOSES
     Route: 042
     Dates: start: 20220302, end: 20220302
  5. RUXIENCE [Suspect]
     Active Substance: RITUXIMAB-PVVR
     Dosage: 500 MG, EVERY 6 MONTHS
     Route: 042
     Dates: start: 20220902, end: 20220902
  6. RUXIENCE [Suspect]
     Active Substance: RITUXIMAB-PVVR
     Dosage: 500 MG, EVERY 6 MONTHS
     Route: 042
     Dates: start: 20230303, end: 20230303
  7. RUXIENCE [Suspect]
     Active Substance: RITUXIMAB-PVVR
     Dosage: 500 MG, EVERY 6 MONTHS
     Route: 042
     Dates: start: 20230924, end: 20230924
  8. AMLODIPINE [Concomitant]
     Active Substance: AMLODIPINE BESYLATE
     Dosage: 1 DF, DOSAGE INFO: NOT PROVIDED
     Route: 065
  9. ARANESP [Concomitant]
     Active Substance: DARBEPOETIN ALFA
     Dosage: 1 DF, WEEKLY, EVERY WEDNESDAY
     Route: 065
  10. FUROSEMIDE [Concomitant]
     Active Substance: FUROSEMIDE
     Dosage: 40 MG, FREQUENCY NOT PROVIDED
     Route: 065
  11. HYDRALAZINE [Concomitant]
     Active Substance: HYDRALAZINE HYDROCHLORIDE
     Dosage: UNK
  12. INSULIN NOS [Concomitant]
     Active Substance: INSULIN NOS
     Dosage: UNK
  13. RABEPRAZOLE [Concomitant]
     Active Substance: RABEPRAZOLE
     Dosage: UNK
  14. RENOVIT [Concomitant]
     Dosage: UNK
  15. SULFADIAZINE\TRIMETHOPRIM [Concomitant]
     Active Substance: SULFADIAZINE\TRIMETHOPRIM
     Dosage: UNK
  16. SYNTHROID [Concomitant]
     Active Substance: LEVOTHYROXINE SODIUM
     Dosage: UNK
  17. CHOLECALCIFEROL [Concomitant]
     Active Substance: CHOLECALCIFEROL
     Dosage: UNK

REACTIONS (9)
  - Renal failure [Not Recovered/Not Resolved]
  - Pulmonary oedema [Unknown]
  - C-reactive protein increased [Unknown]
  - Obesity [Unknown]
  - Exposure to SARS-CoV-2 [Unknown]
  - COVID-19 [Unknown]
  - Off label use [Unknown]
  - Off label use [Unknown]
  - Intentional product use issue [Unknown]

NARRATIVE: CASE EVENT DATE: 20230101
